FAERS Safety Report 18695643 (Version 1)
Quarter: 2021Q1

REPORT INFORMATION
  Report Type: Spontaneous
  Country: US (occurrence: US)
  Receive Date: 20210101
  Receipt Date: 20210101
  Transmission Date: 20210419
  Serious: No
  Sender: FDA-Public Use
  Company Number: None

PATIENT
  Sex: Female
  Weight: 61.4 kg

DRUGS (22)
  1. VINCRISTINE SULFATE. [Suspect]
     Active Substance: VINCRISTINE SULFATE
     Dates: end: 20201106
  2. DEPO?PROVERA [Concomitant]
     Active Substance: MEDROXYPROGESTERONE ACETATE
  3. LEVOFLOXACIN. [Concomitant]
     Active Substance: LEVOFLOXACIN
  4. ACYCLOVIR. [Concomitant]
     Active Substance: ACYCLOVIR
  5. KEPPRA [Concomitant]
     Active Substance: LEVETIRACETAM
  6. ZOFRAN [Concomitant]
     Active Substance: ONDANSETRON HYDROCHLORIDE
  7. MERCAPTOPURINE. [Suspect]
     Active Substance: MERCAPTOPURINE
     Dates: end: 20201125
  8. HUMALOG [Concomitant]
     Active Substance: INSULIN LISPRO
  9. BENADRYL [Concomitant]
     Active Substance: DIPHENHYDRAMINE HYDROCHLORIDE
  10. GABAPENTIN. [Concomitant]
     Active Substance: GABAPENTIN
  11. XARELTO [Concomitant]
     Active Substance: RIVAROXABAN
  12. ZOLOFT [Concomitant]
     Active Substance: SERTRALINE HYDROCHLORIDE
  13. METHOTREXATE. [Suspect]
     Active Substance: METHOTREXATE
     Dates: end: 20201113
  14. OMEPRAZOLE. [Concomitant]
     Active Substance: OMEPRAZOLE
  15. ONCASPAR [Suspect]
     Active Substance: PEGASPARGASE
     Dates: end: 20201030
  16. CYTARABINE. [Suspect]
     Active Substance: CYTARABINE
     Dates: end: 20201125
  17. VORICONAZOLE. [Concomitant]
     Active Substance: VORICONAZOLE
  18. OXYCODONE [Concomitant]
     Active Substance: OXYCODONE
  19. PENTAMADINE [Concomitant]
  20. TIGAN [Concomitant]
     Active Substance: TRIMETHOBENZAMIDE HYDROCHLORIDE
  21. CYCLOPHOSPHAMIDE. [Suspect]
     Active Substance: CYCLOPHOSPHAMIDE
     Dates: end: 20201117
  22. LEUCOVORIN CALCIUM. [Suspect]
     Active Substance: LEUCOVORIN CALCIUM
     Dates: end: 20201114

REACTIONS (1)
  - Blood bilirubin increased [None]

NARRATIVE: CASE EVENT DATE: 20201126
